FAERS Safety Report 4827138-9 (Version None)
Quarter: 2005Q4

REPORT INFORMATION
  Report Type: 
  Country: None (occurrence: None)
  Receive Date: 20051014
  Receipt Date: 20050623
  Transmission Date: 20060501
  Serious: No
  Sender: FDA-Public Use
  Company Number: 2005SP001565

PATIENT
  Age: 55 Year
  Sex: Female
  Weight: 55.3388 kg

DRUGS (5)
  1. LUNESTA [Suspect]
     Indication: INSOMNIA
     Dosage: 2 MG; QOD; ORAL   1 MG;QOD;ORAL  1 MG;QD;ORAL
     Route: 048
     Dates: start: 20050511, end: 20050101
  2. LUNESTA [Suspect]
     Indication: INSOMNIA
     Dosage: 2 MG; QOD; ORAL   1 MG;QOD;ORAL  1 MG;QD;ORAL
     Route: 048
     Dates: start: 20050430, end: 20050510
  3. LUNESTA [Suspect]
     Indication: INSOMNIA
     Dosage: 2 MG; QOD; ORAL   1 MG;QOD;ORAL  1 MG;QD;ORAL
     Route: 048
     Dates: start: 20050101
  4. KLONOPIN [Concomitant]
  5. LEXAPRO [Concomitant]

REACTIONS (4)
  - ANXIETY [None]
  - DEPRESSION [None]
  - DRUG INEFFECTIVE [None]
  - INSOMNIA [None]
